FAERS Safety Report 7463203-8 (Version None)
Quarter: 2011Q2

REPORT INFORMATION
  Report Type: 
  Country: None (occurrence: None)
  Receive Date: 20110428
  Receipt Date: 20110414
  Transmission Date: 20111010
  Serious: Yes (Hospitalization, Other)
  Sender: FDA-Public Use
  Company Number: JPI-P-014606

PATIENT
  Age: 43 Year
  Sex: Female
  Weight: 74.3899 kg

DRUGS (2)
  1. XYREM [Suspect]
     Indication: CATAPLEXY
     Dosage: (2 IN 1 D), ORAL, 12 GM (6 GM, 2 IN 1 D), ORAL
     Route: 048
     Dates: start: 20081001
  2. MULTIPLE UNSPECIFIED MEDICATIONS [Concomitant]

REACTIONS (2)
  - PNEUMONIA [None]
  - INCISION SITE INFECTION [None]
